FAERS Safety Report 6262483-4 (Version None)
Quarter: 2009Q3

REPORT INFORMATION
  Report Type: 
  Country: None (occurrence: None)
  Receive Date: 20090709
  Receipt Date: 20090629
  Transmission Date: 20100115
  Serious: Yes (Other)
  Sender: FDA-Public Use
  Company Number: GB-TEVA-200551ISR

PATIENT
  Sex: Male

DRUGS (4)
  1. PRAVASTATIN [Interacting]
     Route: 048
     Dates: start: 20080201, end: 20080305
  2. SIMVASTATIN [Interacting]
     Route: 048
     Dates: start: 20071207, end: 20080201
  3. EZETIMIBE [Suspect]
     Route: 048
     Dates: start: 20080305, end: 20090107
  4. SILDENAFIL [Interacting]
     Indication: ERECTILE DYSFUNCTION
     Route: 048
     Dates: start: 20010307

REACTIONS (4)
  - BLOOD PRESSURE ABNORMAL [None]
  - DRUG INEFFECTIVE [None]
  - DRUG INTERACTION [None]
  - ERECTILE DYSFUNCTION [None]
